FAERS Safety Report 24391608 (Version 1)
Quarter: 2024Q4

REPORT INFORMATION
  Report Type: Spontaneous
  Country: US (occurrence: None)
  Receive Date: 20241002
  Receipt Date: 20241002
  Transmission Date: 20250115
  Serious: Yes (Life-Threatening, Hospitalization)
  Sender: Public
  Company Number: None

PATIENT
  Age: 76 Year
  Sex: Male
  Weight: 102 kg

DRUGS (5)
  1. APIXABAN [Suspect]
     Active Substance: APIXABAN
     Indication: Astrocytoma, low grade
     Dosage: FREQUENCY : TWICE A DAY;?
     Route: 048
  2. APIXABAN [Suspect]
     Active Substance: APIXABAN
     Indication: Mitral valve repair
  3. ASPIRIN [Suspect]
     Active Substance: ASPIRIN
     Indication: Coronary arterial stent insertion
     Dosage: FREQUENCY : DAILY;?
     Route: 048
  4. ADVIL [Suspect]
     Active Substance: IBUPROFEN
  5. EXCEDRIN [Suspect]
     Active Substance: ACETAMINOPHEN\ASPIRIN\CAFFEINE

REACTIONS (4)
  - Haemorrhage [None]
  - Gastrointestinal haemorrhage [None]
  - Haemoglobin decreased [None]
  - Polypectomy [None]

NARRATIVE: CASE EVENT DATE: 20240313
